FAERS Safety Report 8942462 (Version 4)
Quarter: 2019Q1

REPORT INFORMATION
  Report Type: Spontaneous
  Country: FR (occurrence: FR)
  Receive Date: 20121204
  Receipt Date: 20190208
  Transmission Date: 20190418
  Serious: Yes (Hospitalization, Other)
  Sender: FDA-Public Use
  Company Number: FR-GILEAD-2012-0065446

PATIENT
  Age: 50 Year
  Sex: Male
  Weight: 59 kg

DRUGS (6)
  1. METHADONE [Concomitant]
     Active Substance: METHADONE HYDROCHLORIDE
     Dosage: 100 MG, QD
     Dates: start: 2009, end: 20121009
  2. TRUVADA [Suspect]
     Active Substance: EMTRICITABINE\TENOFOVIR DISOPROXIL FUMARATE
     Indication: HIV INFECTION
     Dosage: 1 DF, QD
     Route: 048
     Dates: start: 201108, end: 20121009
  3. REYATAZ [Concomitant]
     Active Substance: ATAZANAVIR SULFATE
     Dosage: 300 MG, QD
     Route: 048
     Dates: start: 201108, end: 20121009
  4. BACTRIM [Concomitant]
     Active Substance: SULFAMETHOXAZOLE\TRIMETHOPRIM
     Dosage: 400 MG, QD
     Route: 048
     Dates: start: 2009, end: 20121009
  5. NORVIR [Concomitant]
     Active Substance: RITONAVIR
     Dosage: 1 DF, QD
     Route: 048
     Dates: start: 201108, end: 20121009
  6. TERCIAN [CYAMEMAZINE] [Concomitant]
     Active Substance: CYAMEMAZINE
     Dosage: UNK
     Dates: start: 2009, end: 20121009

REACTIONS (7)
  - Respiratory failure [Unknown]
  - Renal tubular necrosis [Recovered/Resolved]
  - Mitochondrial cytopathy [Recovered/Resolved]
  - Acute hepatic failure [Unknown]
  - Acute kidney injury [Recovered/Resolved]
  - General physical health deterioration [Unknown]
  - Rhabdomyolysis [Unknown]

NARRATIVE: CASE EVENT DATE: 20121004
